FAERS Safety Report 12696825 (Version 1)
Quarter: 2016Q3

REPORT INFORMATION
  Report Type: Spontaneous
  Country: US (occurrence: None)
  Receive Date: 20160829
  Receipt Date: 20160829
  Transmission Date: 20161109
  Serious: No
  Sender: FDA-Public Use
  Company Number: None

PATIENT
  Age: 45 Year
  Sex: Female
  Weight: 45.81 kg

DRUGS (1)
  1. BOTOX [Suspect]
     Active Substance: ONABOTULINUMTOXINA
     Indication: MIGRAINE
     Dosage: ONCE EVERY 3 MOS INJECT INTO HEAD/FACE
     Dates: start: 20160406, end: 20160708

REACTIONS (3)
  - Musculoskeletal pain [None]
  - Visual acuity reduced [None]
  - Neck pain [None]

NARRATIVE: CASE EVENT DATE: 20160408
